FAERS Safety Report 13065402 (Version 2)
Quarter: 2017Q2

REPORT INFORMATION
  Report Type: Report from Study
  Country: EG (occurrence: EG)
  Receive Date: 20161227
  Receipt Date: 20170516
  Transmission Date: 20170830
  Serious: Yes (Other)
  Sender: FDA-Public Use
  Company Number: EG-PFIZER INC-2016596603

PATIENT
  Age: 32 Year
  Sex: Male

DRUGS (2)
  1. MORPHINE SULFATE. [Suspect]
     Active Substance: MORPHINE SULFATE
     Indication: ANAESTHESIA
     Dosage: 0.2 MG, UNK
     Route: 039
  2. BUPIVACAINE. [Suspect]
     Active Substance: BUPIVACAINE
     Indication: ANAESTHESIA
     Dosage: 15 MG, UNK
     Route: 037

REACTIONS (2)
  - Hypothermia [Not Recovered/Not Resolved]
  - Urinary retention [Recovered/Resolved]
